FAERS Safety Report 15200666 (Version 1)
Quarter: 2018Q3

REPORT INFORMATION
  Report Type: Spontaneous
  Country: FR (occurrence: FR)
  Receive Date: 20180726
  Receipt Date: 20180726
  Transmission Date: 20181010
  Serious: Yes (Hospitalization)
  Sender: FDA-Public Use
  Company Number: FR-ROCHE-2160037

PATIENT
  Age: 60 Year
  Sex: Female

DRUGS (5)
  1. ROPIVACAINE KABI [Suspect]
     Active Substance: ROPIVACAINE
     Indication: PAIN
     Route: 041
     Dates: start: 20150913
  2. TRAMADOL. [Suspect]
     Active Substance: TRAMADOL
     Indication: PAIN
     Route: 048
     Dates: start: 20150910
  3. CONTRAMAL [Suspect]
     Active Substance: TRAMADOL HYDROCHLORIDE
     Indication: PAIN
     Dosage: 100 MG/2ML
     Route: 042
     Dates: start: 20150910, end: 20150912
  4. SUFENTA [Suspect]
     Active Substance: SUFENTANIL CITRATE
     Indication: SEDATION
     Route: 042
     Dates: start: 20150910, end: 20150913
  5. CELLCEPT [Suspect]
     Active Substance: MYCOPHENOLATE MOFETIL\MYCOPHENOLATE MOFETIL HYDROCHLORIDE
     Indication: TRANSPLANT
     Route: 048
     Dates: start: 20150910, end: 20150925

REACTIONS (1)
  - Gastrointestinal motility disorder [Recovered/Resolved]
